FAERS Safety Report 15916761 (Version 1)
Quarter: 2019Q1

REPORT INFORMATION
  Report Type: Spontaneous
  Country: IN (occurrence: IN)
  Receive Date: 20190205
  Receipt Date: 20190205
  Transmission Date: 20190417
  Serious: Yes (Other)
  Sender: FDA-Public Use
  Company Number: IN-PIRAMAL ENTERPRISES LIMITED-2019-PEL-000031

PATIENT

DRUGS (9)
  1. ZONISAMIDE. [Interacting]
     Active Substance: ZONISAMIDE
     Indication: SEIZURE
     Dosage: 100 MG IN THE MORNING AND 200 MG AT BED TIME
     Route: 065
  2. OXCARBAZEPINE. [Interacting]
     Active Substance: OXCARBAZEPINE
     Indication: SEIZURE
     Dosage: 450 MILLIGRAM, BID
     Route: 065
  3. LEVETIRACETAM. [Interacting]
     Active Substance: LEVETIRACETAM
     Indication: SEIZURE
     Dosage: 1500 MILLIGRAM, BID
     Route: 065
  4. SEVOFLURANE. [Suspect]
     Active Substance: SEVOFLURANE
     Indication: MAINTENANCE OF ANAESTHESIA
     Dosage: 0.8?1 MINIMUM ALVEOLAR CONCENTRATION
  5. FENTANYL. [Interacting]
     Active Substance: FENTANYL
     Indication: GENERAL ANAESTHESIA
     Dosage: 60 MICROGRAM
     Route: 065
  6. PROPOFOL. [Interacting]
     Active Substance: PROPOFOL
     Indication: GENERAL ANAESTHESIA
     Dosage: 100 MILLIGRAM
     Route: 065
  7. ROCURONIUM [Interacting]
     Active Substance: ROCURONIUM BROMIDE
     Indication: LOCAL ANAESTHESIA
     Dosage: 12 MILLIGRAM
  8. CLONAZEPAM. [Interacting]
     Active Substance: CLONAZEPAM
     Indication: SEIZURE
     Dosage: 20 MILLIGRAM
     Route: 065
  9. VALPROATE [Interacting]
     Active Substance: VALPROIC ACID
     Indication: SEIZURE
     Dosage: 500 MILLIGRAM, BID
     Route: 065

REACTIONS (4)
  - Unresponsive to stimuli [Recovered/Resolved]
  - Bispectral index decreased [Recovered/Resolved]
  - Potentiating drug interaction [Recovered/Resolved]
  - Delayed recovery from anaesthesia [Recovered/Resolved]
